FAERS Safety Report 25423531 (Version 1)
Quarter: 2025Q2

REPORT INFORMATION
  Report Type: Report from Study
  Country: IN (occurrence: IN)
  Receive Date: 20250611
  Receipt Date: 20250611
  Transmission Date: 20250717
  Serious: Yes (Hospitalization, Other)
  Sender: DAIICHI
  Company Number: IN-AstraZeneca-CH-00883227A

PATIENT
  Sex: Female

DRUGS (1)
  1. ENHERTU [Suspect]
     Active Substance: FAM-TRASTUZUMAB DERUXTECAN-NXKI
     Indication: Breast cancer
     Dosage: 200 MG, ONCE EVERY 3 WK
     Route: 041

REACTIONS (4)
  - Cough [Unknown]
  - Pyrexia [Unknown]
  - Pulmonary oedema [Unknown]
  - Blood pressure decreased [Unknown]
